FAERS Safety Report 10166841 (Version 1)
Quarter: 2014Q2

REPORT INFORMATION
  Report Type: Spontaneous
  Country: US (occurrence: None)
  Receive Date: 20140508
  Receipt Date: 20140508
  Transmission Date: 20141212
  Serious: Yes (Other)
  Sender: FDA-Public Use
  Company Number: UTC-048199

PATIENT
  Age: 62 Year
  Sex: Male
  Weight: 82.55 kg

DRUGS (2)
  1. TYVASO [Suspect]
     Indication: COR PULMONALE CHRONIC
     Dosage: 18-54 MCG (4 IN 1 D), INHALATION
     Route: 055
     Dates: start: 20120213
  2. VIAGRA (SILDENAFIL) (UNKNOWN) [Concomitant]

REACTIONS (5)
  - Suicidal ideation [None]
  - Headache [None]
  - Diarrhoea [None]
  - Vomiting [None]
  - Nausea [None]
